FAERS Safety Report 5277753-6 (Version None)
Quarter: 2007Q1

REPORT INFORMATION
  Report Type: 
  Country: None (occurrence: None)
  Receive Date: 20070327
  Receipt Date: 20070315
  Transmission Date: 20070707
  Serious: Yes (Other)
  Sender: FDA-Public Use
  Company Number: US-PFIZER INC-2006055558

PATIENT
  Sex: Female
  Weight: 90.7 kg

DRUGS (3)
  1. BEXTRA [Suspect]
     Indication: ANALGESIC EFFECT
     Route: 048
  2. VIOXX [Concomitant]
  3. CELEBREX [Concomitant]
     Dates: start: 19980101

REACTIONS (5)
  - CARDIOVASCULAR DISORDER [None]
  - CEREBROVASCULAR ACCIDENT [None]
  - DEPRESSION [None]
  - HYPERTENSION [None]
  - THROMBOSIS [None]
